FAERS Safety Report 5588541-5 (Version None)
Quarter: 2008Q1

REPORT INFORMATION
  Report Type: 
  Country: None (occurrence: None)
  Receive Date: 20080111
  Receipt Date: 20080104
  Transmission Date: 20080703
  Serious: Yes (Hospitalization)
  Sender: FDA-Public Use
  Company Number: HQWYE387126JUN06

PATIENT
  Sex: Male
  Weight: 107.05 kg

DRUGS (7)
  1. RAPAMUNE [Suspect]
     Indication: PROPHYLAXIS AGAINST TRANSPLANT REJECTION
     Dosage: 8 MG ONCE DAILY, STUDY SUPPLY
     Route: 048
     Dates: start: 20050405, end: 20060609
  2. RAPAMUNE [Suspect]
     Dosage: UNKNOWN DOSE, COMMERCIAL SUPPLY
     Route: 048
     Dates: start: 20060610, end: 20060615
  3. RAPAMUNE [Suspect]
     Dosage: UNKNOWN DOSE, COMMERCIAL SUPPLY
     Route: 048
     Dates: start: 20060621, end: 20060601
  4. RAPAMUNE [Suspect]
     Dosage: 3 MG BID, COMMERCIAL SUPPLY
     Route: 048
     Dates: start: 20060601, end: 20060623
  5. CELLCEPT [Suspect]
     Indication: PROPHYLAXIS AGAINST TRANSPLANT REJECTION
     Dosage: UNSPECIFIED
     Route: 048
  6. CORTICOSTEROID NOS [Concomitant]
     Indication: PROPHYLAXIS AGAINST TRANSPLANT REJECTION
     Dosage: UNSPECIFIED
     Route: 048
  7. ZENAPAX [Concomitant]
     Indication: PROPHYLAXIS AGAINST TRANSPLANT REJECTION
     Dosage: UNSPECIFIED

REACTIONS (1)
  - KIDNEY TRANSPLANT REJECTION [None]
